FAERS Safety Report 9830103 (Version 1)
Quarter: 2014Q1

REPORT INFORMATION
  Report Type: Spontaneous
  Country: SG (occurrence: SG)
  Receive Date: 20140120
  Receipt Date: 20140120
  Transmission Date: 20141002
  Serious: Yes (Other)
  Sender: FDA-Public Use
  Company Number: SG-BAYER-2014-004803

PATIENT
  Age: 63 Year
  Sex: Male

DRUGS (1)
  1. CIPROFLOXACIN [Suspect]

REACTIONS (5)
  - Lip swelling [Unknown]
  - Scrotal ulcer [Unknown]
  - Anal ulcer [Unknown]
  - Mouth ulceration [Unknown]
  - Rash [Unknown]
